FAERS Safety Report 9395721 (Version 2)
Quarter: 2014Q1

REPORT INFORMATION
  Report Type: Spontaneous
  Country: IT (occurrence: IT)
  Receive Date: 20130711
  Receipt Date: 20140314
  Transmission Date: 20141002
  Serious: Yes (Life-Threatening)
  Sender: FDA-Public Use
  Company Number: IT-TEVA-416567ISR

PATIENT
  Age: 19 Year
  Sex: Female

DRUGS (1)
  1. CEFTRIAXONE [Suspect]
     Indication: ABDOMINAL PAIN LOWER
     Dosage: 2 DOSAGE FORMS DAILY; POWDER FOR SOLUTION FOR INFUSION
     Route: 042
     Dates: start: 20130526, end: 20130529

REACTIONS (2)
  - Erythema [Recovered/Resolved]
  - Palatal oedema [Recovered/Resolved]
